FAERS Safety Report 10913773 (Version 1)
Quarter: 2015Q1

REPORT INFORMATION
  Report Type: Spontaneous
  Country: US (occurrence: None)
  Receive Date: 20150311
  Receipt Date: 20150311
  Transmission Date: 20150721
  Serious: No
  Sender: FDA-Public Use
  Company Number: None

PATIENT
  Age: 34 Year
  Sex: Female
  Weight: 62.6 kg

DRUGS (6)
  1. PRENATAL VITAMINS [Concomitant]
     Active Substance: VITAMINS
  2. NASAL INHALER [Suspect]
     Active Substance: UNSPECIFIED INGREDIENT
  3. ZYRTEC [Suspect]
     Active Substance: CETIRIZINE HYDROCHLORIDE
     Indication: MULTIPLE ALLERGIES
     Dosage: 1 PILL
     Route: 048
     Dates: start: 20140102, end: 20150306
  4. ALBUTEROL. [Concomitant]
     Active Substance: ALBUTEROL
  5. SINGULAIR [Concomitant]
     Active Substance: MONTELUKAST SODIUM
  6. ALVESCO [Concomitant]
     Active Substance: CICLESONIDE

REACTIONS (1)
  - Pruritus generalised [None]

NARRATIVE: CASE EVENT DATE: 20150306
